FAERS Safety Report 19216244 (Version 1)
Quarter: 2021Q2

REPORT INFORMATION
  Report Type: Spontaneous
  Country: US (occurrence: US)
  Receive Date: 20210505
  Receipt Date: 20210505
  Transmission Date: 20210717
  Serious: Yes (Hospitalization)
  Sender: FDA-Public Use
  Company Number: None

PATIENT
  Age: 68 Year
  Sex: Female
  Weight: 52.5 kg

DRUGS (3)
  1. TAXOL [Suspect]
     Active Substance: PACLITAXEL
     Dates: end: 20210125
  2. CARBOPLATIN. [Suspect]
     Active Substance: CARBOPLATIN
     Dates: end: 20210125
  3. DURVALUMAB (MEDI4736) [Suspect]
     Active Substance: DURVALUMAB
     Dates: end: 20210312

REACTIONS (3)
  - Pneumonia [None]
  - Pneumonia viral [None]
  - Pulmonary cavitation [None]

NARRATIVE: CASE EVENT DATE: 20210406
